FAERS Safety Report 6772543-7 (Version None)
Quarter: 2010Q2

REPORT INFORMATION
  Report Type: 
  Country: None (occurrence: None)
  Receive Date: 20100616
  Receipt Date: 20090408
  Transmission Date: 20101027
  Serious: No
  Sender: FDA-Public Use
  Company Number: US-ASTRAZENECA-2009UW06461

PATIENT
  Sex: Female

DRUGS (1)
  1. PULMICORT RESUPLES [Suspect]
     Indication: ASTHMA
     Dosage: 1 DOSE, BID
     Route: 055
     Dates: start: 20080101

REACTIONS (2)
  - DYSPNOEA [None]
  - HEADACHE [None]
